FAERS Safety Report 7005476-1 (Version None)
Quarter: 2010Q3

REPORT INFORMATION
  Report Type: 
  Country: None (occurrence: None)
  Receive Date: 20100921
  Receipt Date: 20100919
  Transmission Date: 20110219
  Serious: Yes (Death)
  Sender: FDA-Public Use
  Company Number: CN-ROCHE-727823

PATIENT
  Sex: Male

DRUGS (3)
  1. MYCOPHENOLATE MOFETIL [Suspect]
     Indication: RENAL TRANSPLANT
     Route: 048
     Dates: start: 20090328
  2. PROGRAF [Concomitant]
     Indication: RENAL TRANSPLANT
  3. PREDNISONE [Concomitant]
     Indication: RENAL TRANSPLANT

REACTIONS (1)
  - AZOTAEMIA [None]
